FAERS Safety Report 10687904 (Version 1)
Quarter: 2014Q4

REPORT INFORMATION
  Report Type: Spontaneous
  Country: US (occurrence: None)
  Receive Date: 20141231
  Receipt Date: 20141231
  Transmission Date: 20150529
  Serious: Yes (Hospitalization)
  Sender: FDA-Public Use
  Company Number: None

PATIENT
  Age: 41 Year
  Sex: Male
  Weight: 83 kg

DRUGS (2)
  1. BACLOFEN. [Suspect]
     Active Substance: BACLOFEN
     Indication: PAIN
     Route: 048
     Dates: start: 20141002, end: 20141030
  2. BACLOFEN. [Suspect]
     Active Substance: BACLOFEN
     Indication: BACK PAIN
     Route: 048
     Dates: start: 20141002, end: 20141030

REACTIONS (7)
  - Asthma [None]
  - Dyspnoea [None]
  - Chest pain [None]
  - Paraesthesia [None]
  - Aphasia [None]
  - Asthenia [None]
  - Paralysis [None]

NARRATIVE: CASE EVENT DATE: 20141030
